FAERS Safety Report 10285043 (Version 4)
Quarter: 2020Q3

REPORT INFORMATION
  Report Type: Spontaneous
  Country: US (occurrence: US)
  Receive Date: 20140708
  Receipt Date: 20200915
  Transmission Date: 20201102
  Serious: Yes (Disabling, Other)
  Sender: FDA-Public Use
  Company Number: US-PFIZER INC-2014187482

PATIENT
  Age: 67 Year
  Sex: Female
  Weight: 104.33 kg

DRUGS (3)
  1. LYRICA [Suspect]
     Active Substance: PREGABALIN
     Indication: NEUROPATHY PERIPHERAL
     Dosage: UNK
  2. LYRICA [Suspect]
     Active Substance: PREGABALIN
     Dosage: 225 MG, 2X/DAY (1 CAPSULE BY MOUTH IN THE MORNING AND 1)
     Route: 048
  3. TRAMADOL. [Concomitant]
     Active Substance: TRAMADOL
     Indication: PAIN
     Dosage: 50 MG, AS NEEDED (50MG, 1 TABLET BY MOUTH EVERY 6 HOURS AS NEEDED FOR)

REACTIONS (5)
  - Dysstasia [Unknown]
  - Pain in extremity [Unknown]
  - Lower limb fracture [Not Recovered/Not Resolved]
  - Fall [Unknown]
  - Walking disability [Not Recovered/Not Resolved]

NARRATIVE: CASE EVENT DATE: 2020
